FAERS Safety Report 14365960 (Version 1)
Quarter: 2018Q1

REPORT INFORMATION
  Report Type: Spontaneous
  Country: FR (occurrence: FR)
  Receive Date: 20180109
  Receipt Date: 20180109
  Transmission Date: 20180509
  Serious: Yes (Other)
  Sender: FDA-Public Use
  Company Number: FR-MERCK KGAA-2039687

PATIENT
  Age: 36 Year
  Sex: Female
  Weight: 86 kg

DRUGS (1)
  1. NOVOTHYROX [Suspect]
     Active Substance: LEVOTHYROXINE SODIUM
     Indication: THYROIDECTOMY
     Route: 048
     Dates: start: 2017

REACTIONS (9)
  - Diarrhoea [Not Recovered/Not Resolved]
  - Amnesia [Not Recovered/Not Resolved]
  - Palpitations [Not Recovered/Not Resolved]
  - Headache [Not Recovered/Not Resolved]
  - Abnormal weight gain [Not Recovered/Not Resolved]
  - Blood thyroid stimulating hormone decreased [Unknown]
  - Insomnia [Not Recovered/Not Resolved]
  - Alopecia [Not Recovered/Not Resolved]
  - Onychomadesis [Not Recovered/Not Resolved]

NARRATIVE: CASE EVENT DATE: 201706
